FAERS Safety Report 6297533-2 (Version None)
Quarter: 2009Q3

REPORT INFORMATION
  Report Type: 
  Country: None (occurrence: None)
  Receive Date: 20090804
  Receipt Date: 20090804
  Transmission Date: 20100115
  Serious: Yes (Hospitalization)
  Sender: FDA-Public Use
  Company Number: None

PATIENT
  Age: 28 Year
  Sex: Female
  Weight: 99 kg

DRUGS (11)
  1. TEMOZOLOMIDE [Suspect]
     Indication: GLIOMA
     Dosage: (90MG/M2/DAY) PO DAILY
     Route: 048
     Dates: start: 20090629, end: 20090727
  2. BEVACIZUMAB [Suspect]
     Indication: GLIOMA
     Dosage: (10MG/KG) IV Q 21 DAYS
     Route: 042
     Dates: start: 20090721
  3. SEASONIQUE [Concomitant]
  4. DECADRON [Concomitant]
  5. KEPPRA [Concomitant]
  6. LORAZEPAM [Concomitant]
  7. VERSED [Concomitant]
  8. ONDANSETRON [Concomitant]
  9. ZANTAC [Concomitant]
  10. ZOLOFT [Concomitant]
  11. TOPAMAX [Concomitant]

REACTIONS (5)
  - BODY TEMPERATURE INCREASED [None]
  - HEADACHE [None]
  - NEUTROPHIL COUNT DECREASED [None]
  - PLATELET COUNT DECREASED [None]
  - WHITE BLOOD CELL COUNT DECREASED [None]
